FAERS Safety Report 4349162-5 (Version None)
Quarter: 2004Q2

REPORT INFORMATION
  Report Type: 
  Country: None (occurrence: None)
  Receive Date: 20040427
  Receipt Date: 20030401
  Transmission Date: 20050107
  Serious: Yes (Life-Threatening)
  Sender: FDA-Public Use
  Company Number: 000507

PATIENT
  Age: 56 Year
  Sex: Female
  Weight: 65.8 kg

DRUGS (5)
  1. ZEVALIN [Suspect]
     Indication: NON-HODGKIN'S LYMPHOMA
     Dosage: 250 MG/M2, SINGLE RITUXAN DOSE 1, INTRAVENOUS
     Route: 042
     Dates: start: 20021023, end: 20021023
  2. ZEVALIN [Suspect]
     Dosage: 5 MCI, SINGLE, IN-[111] ZEVALIN, INTRAVENOUS
     Route: 042
     Dates: start: 20021023, end: 20021023
  3. ZEVALIN [Suspect]
     Dosage: 250 MG/M2, SINGLE RITUXAN DOSE 2, INTRAVENOUS
     Route: 042
     Dates: start: 20021031, end: 20021031
  4. ZEVALIN [Suspect]
     Dosage: 5 MCI, SINGLE, IN-[111] ZEVALIN, INTRAVENOUS
     Route: 042
     Dates: start: 20021031, end: 20021031
  5. ZEVALIN [Suspect]
     Dosage: 59.3 MCI, SINGLE, Y-[90] ZEVALIN, INTRAVENOUS
     Route: 042
     Dates: start: 20021031, end: 20021031

REACTIONS (1)
  - PANCYTOPENIA [None]
